FAERS Safety Report 21156807 (Version 2)
Quarter: 2022Q3

REPORT INFORMATION
  Report Type: Report from Study
  Country: US (occurrence: None)
  Receive Date: 20220801
  Receipt Date: 20220927
  Transmission Date: 20221027
  Serious: Yes (Hospitalization)
  Sender: FDA-Public Use
  Company Number: US-Eisai Medical Research-EC-2022-120101

PATIENT
  Age: 60 Year
  Sex: Male
  Weight: 97.72 kg

DRUGS (18)
  1. LENVIMA [Suspect]
     Active Substance: LENVATINIB
     Indication: Thyroid cancer
     Route: 048
     Dates: start: 20191129
  2. LENVIMA [Suspect]
     Active Substance: LENVATINIB
     Route: 048
     Dates: end: 202104
  3. LENVIMA [Suspect]
     Active Substance: LENVATINIB
     Route: 048
     Dates: start: 20210426, end: 20220816
  4. IMODIUM [Concomitant]
     Active Substance: LOPERAMIDE HYDROCHLORIDE
     Indication: Product used for unknown indication
  5. AMLODIPINE BESYLATE [Concomitant]
     Active Substance: AMLODIPINE BESYLATE
  6. METOPROLOL SUCCINATE [Concomitant]
     Active Substance: METOPROLOL SUCCINATE
  7. PAROEX [Concomitant]
     Active Substance: CHLORHEXIDINE GLUCONATE
  8. LISINOPRIL [Concomitant]
     Active Substance: LISINOPRIL
  9. CHLORHEXIDIEN GLUCONATE [Concomitant]
  10. TYLENOL [Concomitant]
     Active Substance: ACETAMINOPHEN
  11. CORICIDIN HBP CHEST CO [Concomitant]
  12. ESOMEPRAZOLE MAGNESIUM [Concomitant]
     Active Substance: ESOMEPRAZOLE MAGNESIUM
  13. LEVOTHYROXINE SODIUM [Concomitant]
     Active Substance: LEVOTHYROXINE SODIUM
  14. CIPROFLOXACIN [Concomitant]
     Active Substance: CIPROFLOXACIN
  15. AMOXICILLIN\CLAVULANIC ACID [Concomitant]
     Active Substance: AMOXICILLIN\CLAVULANIC ACID
  16. HYDROCORTISONE [Concomitant]
     Active Substance: HYDROCORTISONE
  17. NIFEDIPINE [Concomitant]
     Active Substance: NIFEDIPINE
  18. ZOFRAN [Concomitant]
     Active Substance: ONDANSETRON HYDROCHLORIDE

REACTIONS (2)
  - Dehydration [Unknown]
  - Diarrhoea [Unknown]

NARRATIVE: CASE EVENT DATE: 20220101
